FAERS Safety Report 5609723-X (Version None)
Quarter: 2008Q1

REPORT INFORMATION
  Report Type: 
  Country: None (occurrence: None)
  Receive Date: 20080131
  Receipt Date: 20070627
  Transmission Date: 20080703
  Serious: No
  Sender: FDA-Public Use
  Company Number: US-BAYER-200712056BCC

PATIENT
  Sex: Female
  Weight: 50 kg

DRUGS (1)
  1. ALEVE COLD AND SINUS [Suspect]
     Indication: SINUS DISORDER
     Dosage: AS USED: 220/120 MG  UNIT DOSE: 220 MG
     Route: 048

REACTIONS (3)
  - ANXIETY [None]
  - INSOMNIA [None]
  - TENSION [None]
